FAERS Safety Report 24403394 (Version 2)
Quarter: 2025Q3

REPORT INFORMATION
  Report Type: Spontaneous
  Country: US (occurrence: None)
  Receive Date: 20241007
  Receipt Date: 20250816
  Transmission Date: 20251021
  Serious: No
  Sender: ALEXION PHARMACEUTICALS
  Company Number: US-ASTRAZENECA-202409USA011445US

PATIENT
  Sex: Male

DRUGS (2)
  1. WAINUA [Suspect]
     Active Substance: EPLONTERSEN
     Indication: Cardiac amyloidosis
  2. VYNDAMAX [Suspect]
     Active Substance: TAFAMIDIS
     Indication: Cardiac amyloidosis
     Dosage: 61 MILLIGRAM, QD

REACTIONS (1)
  - Confusional state [Unknown]
